FAERS Safety Report 9265522 (Version 1)
Quarter: 2013Q2

REPORT INFORMATION
  Report Type: Spontaneous
  Country: US (occurrence: US)
  Receive Date: 20130501
  Receipt Date: 20130501
  Transmission Date: 20140414
  Serious: No
  Sender: FDA-Public Use
  Company Number: US-B.I. PHARMACEUTICALS,INC./RIDGEFIELD-2013-BI-11185BP

PATIENT
  Sex: Female
  Weight: 78 kg

DRUGS (16)
  1. SPIRIVA [Suspect]
     Indication: CHRONIC OBSTRUCTIVE PULMONARY DISEASE
     Dosage: 108 NR
  2. SPIRIVA [Suspect]
     Indication: EMPHYSEMA
  3. PRO-AIR [Suspect]
     Indication: ASTHMA
  4. ADVAIR [Suspect]
     Indication: ASTHMA
  5. ALBUTEROL SULFATE [Concomitant]
  6. LEVOTHYROXINE [Concomitant]
     Dosage: 88 MCG
     Route: 048
  7. ALBUTEROL [Concomitant]
  8. PREDNISONE [Concomitant]
     Route: 048
  9. THEOPHYLLINE [Concomitant]
     Dosage: 250 MG
     Route: 048
  10. THEOPHYLLINE [Concomitant]
     Dosage: 300 MG
     Route: 048
  11. VITAMIN D2 [Concomitant]
     Dosage: 7142.8571 U
  12. MUCINEX [Concomitant]
     Dosage: 2400 MG
  13. CLARITIN-D [Concomitant]
  14. ADVIL [Concomitant]
     Indication: SLEEP DISORDER
     Dosage: 200 MG
  15. QVAR [Concomitant]
  16. IPRATROPIUM BROMIDE [Concomitant]

REACTIONS (1)
  - Asthma [Recovered/Resolved]
